FAERS Safety Report 9340439 (Version 1)
Quarter: 2013Q2

REPORT INFORMATION
  Report Type: Spontaneous
  Country: GR (occurrence: None)
  Receive Date: 20130605
  Receipt Date: 20130605
  Transmission Date: 20140414
  Serious: Yes (Hospitalization)
  Sender: FDA-Public Use
  Company Number: AUR-APL-2013-04416

PATIENT
  Age: 81 Year
  Sex: Male

DRUGS (6)
  1. CLOPIDOGREL (CLOPIDOGREL) [Suspect]
     Indication: POST PROCEDURAL PULMONARY EMBOLISM
  2. ASPIRIN BAYER [Suspect]
     Indication: POST PROCEDURAL PULMONARY EMBOLISM
  3. LEVOTHYROXINE (LEVOTHYROXINE) [Concomitant]
  4. VALSARTAN (VALSARTAN) [Concomitant]
  5. VANCOMYCIN (VANCOMYCIN) [Concomitant]
  6. PIPERACILLIN AND TAZPBACTAM (PIP/TAZO) [Concomitant]

REACTIONS (4)
  - Extravasation [None]
  - Procedural complication [None]
  - Post procedural haemorrhage [None]
  - Atrioventricular block complete [None]
